FAERS Safety Report 19408198 (Version 1)
Quarter: 2021Q2

REPORT INFORMATION
  Report Type: Spontaneous
  Country: US (occurrence: US)
  Receive Date: 20210611
  Receipt Date: 20210611
  Transmission Date: 20210717
  Serious: No
  Sender: FDA-Public Use
  Company Number: US-009507513-2105USA006856

PATIENT
  Age: 22 Year
  Sex: Male

DRUGS (4)
  1. BEVACIZUMAB. [Concomitant]
     Active Substance: BEVACIZUMAB
     Indication: BRAIN STEM GLIOMA
  2. TEMODAR [Suspect]
     Active Substance: TEMOZOLOMIDE
     Indication: BRAIN STEM GLIOMA
     Dosage: UNK
     Route: 048
     Dates: start: 201503, end: 201612
  3. TEMODAR [Suspect]
     Active Substance: TEMOZOLOMIDE
     Indication: EVIDENCE BASED TREATMENT
  4. BEVACIZUMAB. [Concomitant]
     Active Substance: BEVACIZUMAB
     Indication: EVIDENCE BASED TREATMENT

REACTIONS (1)
  - Product use in unapproved indication [Unknown]
